FAERS Safety Report 12989351 (Version 1)
Quarter: 2016Q4

REPORT INFORMATION
  Report Type: Spontaneous
  Country: US (occurrence: US)
  Receive Date: 20161201
  Receipt Date: 20161201
  Transmission Date: 20170207
  Serious: Yes (Hospitalization, Other)
  Sender: FDA-Public Use
  Company Number: US-CLINIGEN GROUP PLC/ CLINIGEN HEALTHCARE LTD-E2B_00000334

PATIENT
  Age: 50 Year
  Sex: Male
  Weight: 75.3 kg

DRUGS (11)
  1. DIFLUCAN [Concomitant]
     Active Substance: FLUCONAZOLE
     Indication: ORAL CANDIDIASIS
     Dates: end: 200610
  2. ROXICET [Concomitant]
     Active Substance: ACETAMINOPHEN\OXYCODONE HYDROCHLORIDE
     Indication: PAIN
     Dosage: 5-10CC EVERY 4 HOURS AS NEEDED
     Route: 050
     Dates: end: 200610
  3. ROXICET [Concomitant]
     Active Substance: ACETAMINOPHEN\OXYCODONE HYDROCHLORIDE
     Indication: PAIN
     Dosage: 5-10CC EVERY 4 HOURS AS NEEDED
     Route: 048
  4. ZOFRAN [Concomitant]
     Active Substance: ONDANSETRON HYDROCHLORIDE
     Indication: NAUSEA
     Dates: end: 200610
  5. CISPLATIN. [Concomitant]
     Active Substance: CISPLATIN
     Indication: TONSIL CANCER
     Dates: start: 20061011
  6. TYLENOL [Suspect]
     Active Substance: ACETAMINOPHEN
     Indication: PYREXIA
  7. COUMADIN [Concomitant]
     Active Substance: WARFARIN SODIUM
     Dosage: 10MG ALTERNATING WITH 7.5MG
     Dates: end: 200610
  8. ETHYOL [Suspect]
     Active Substance: AMIFOSTINE
     Indication: PRODUCT USED FOR UNKNOWN INDICATION
     Route: 058
     Dates: start: 20061011, end: 20061019
  9. ETHYOL [Suspect]
     Active Substance: AMIFOSTINE
     Route: 058
     Dates: start: 20061023, end: 20061023
  10. RADIATION THERAPY [Concomitant]
     Active Substance: RADIATION THERAPY
     Indication: TONSIL CANCER
     Dates: start: 20061011
  11. COUMADIN [Concomitant]
     Active Substance: WARFARIN SODIUM
     Dates: start: 20061028

REACTIONS (15)
  - Haemolytic anaemia [Recovered/Resolved]
  - Fatigue [Unknown]
  - Malaise [Unknown]
  - Leukopenia [Recovered/Resolved]
  - Thrombocytopenia [Recovered/Resolved]
  - Decreased appetite [Unknown]
  - Chills [Recovered/Resolved]
  - Weight decreased [Unknown]
  - Nausea [Unknown]
  - Drug-induced liver injury [Recovered/Resolved]
  - Pyrexia [Recovered/Resolved]
  - Hepatic failure [Recovered/Resolved]
  - Oral pain [Recovered/Resolved]
  - Vomiting [Unknown]
  - Neutropenia [Recovered/Resolved]

NARRATIVE: CASE EVENT DATE: 2006
